FAERS Safety Report 7249305-X (Version None)
Quarter: 2011Q1

REPORT INFORMATION
  Report Type: 
  Country: None (occurrence: None)
  Receive Date: 20110128
  Receipt Date: 20101129
  Transmission Date: 20110831
  Serious: Yes (Hospitalization, Other)
  Sender: FDA-Public Use
  Company Number: US-BAYER-201013716NA

PATIENT
  Sex: Female
  Weight: 54.545 kg

DRUGS (7)
  1. PHENERGAN [Concomitant]
     Dates: start: 20000101
  2. LORTAB [Concomitant]
     Dates: start: 20000101
  3. ZOLOFT [Concomitant]
     Indication: DEPRESSION
     Dosage: 100 MG, UNK
     Route: 065
     Dates: start: 20090519
  4. PERCOCET [Concomitant]
     Dates: start: 20000101
  5. OCELLA [Suspect]
     Indication: ACNE
     Route: 048
     Dates: start: 20090107, end: 20091001
  6. PANTOPRAZOLE [Concomitant]
     Dosage: UNK
     Dates: start: 20090702
  7. IBUPROFEN [Concomitant]
     Dates: start: 20000101

REACTIONS (1)
  - GALLBLADDER INJURY [None]
